FAERS Safety Report 4664994-1 (Version None)
Quarter: 2005Q2

REPORT INFORMATION
  Report Type: 
  Country: None (occurrence: None)
  Receive Date: 20050518
  Receipt Date: 20041125
  Transmission Date: 20051028
  Serious: Yes (Hospitalization)
  Sender: FDA-Public Use
  Company Number: FR-BRISTOL-MYERS SQUIBB COMPANY-12775763

PATIENT
  Age: 32 Year
  Sex: Male

DRUGS (7)
  1. MODECATE [Suspect]
     Route: 030
     Dates: start: 19940101
  2. MEPRONIZINE [Suspect]
     Dosage: DURATION: SEVERAL MONTHS
     Route: 048
     Dates: start: 20040101
  3. VICTAN [Suspect]
     Route: 048
  4. STILNOX [Suspect]
     Route: 048
  5. DEPAKENE [Suspect]
     Route: 048
  6. ISOPTIN [Suspect]
     Indication: HYPERTROPHIC CARDIOMYOPATHY
     Route: 048
  7. ZYLORIC [Suspect]

REACTIONS (4)
  - HYPERKALAEMIA [None]
  - HYPONATRAEMIA [None]
  - INAPPROPRIATE ANTIDIURETIC HORMONE SECRETION [None]
  - PNEUMONIA [None]
